FAERS Safety Report 6382750-3 (Version None)
Quarter: 2009Q3

REPORT INFORMATION
  Report Type: 
  Country: None (occurrence: None)
  Receive Date: 20090928
  Receipt Date: 20090928
  Transmission Date: 20100115
  Serious: Yes (Death)
  Sender: FDA-Public Use
  Company Number: None

PATIENT
  Age: 17 Year
  Sex: Female
  Weight: 63.5036 kg

DRUGS (4)
  1. EFFEXOR [Suspect]
     Indication: ANXIETY
     Dosage: 150MG 1 TIME PER DAY PO
     Route: 048
     Dates: start: 20090224, end: 20090314
  2. EFFEXOR [Suspect]
     Indication: MIGRAINE
     Dosage: 150MG 1 TIME PER DAY PO
     Route: 048
     Dates: start: 20090224, end: 20090314
  3. EFFEXOR [Suspect]
     Indication: POST-TRAUMATIC STRESS DISORDER
     Dosage: 150MG 1 TIME PER DAY PO
     Route: 048
     Dates: start: 20090224, end: 20090314
  4. FLUOXETINE HCL [Suspect]
     Indication: ANXIETY
     Dosage: 150MG  1 TIME PER DAY PO
     Route: 048
     Dates: start: 20051005, end: 20090314

REACTIONS (12)
  - ANXIETY [None]
  - ASPHYXIA [None]
  - COMPLETED SUICIDE [None]
  - EDUCATIONAL PROBLEM [None]
  - EMOTIONAL DISTRESS [None]
  - INFLUENZA [None]
  - LEGAL PROBLEM [None]
  - MIGRAINE [None]
  - MULTIPLE DRUG OVERDOSE [None]
  - PANIC ATTACK [None]
  - PARTNER STRESS [None]
  - PNEUMONIA [None]
